FAERS Safety Report 10844433 (Version 3)
Quarter: 2015Q1

REPORT INFORMATION
  Report Type: Spontaneous
  Country: CA (occurrence: CA)
  Receive Date: 20150220
  Receipt Date: 20150309
  Transmission Date: 20150721
  Serious: Yes (Other)
  Sender: FDA-Public Use
  Company Number: CA-PFIZER INC-2015060344

PATIENT
  Sex: Female

DRUGS (2)
  1. BENYLIN /00546002/ [Suspect]
     Active Substance: AMBROXOL HYDROCHLORIDE
     Indication: RHINORRHOEA
     Dosage: 1 DF, SINGLE
     Route: 048
     Dates: start: 20140409, end: 20140409
  2. ADVIL [Suspect]
     Active Substance: IBUPROFEN
     Dosage: 200 MG, SINGLE
     Route: 048
     Dates: start: 20140409, end: 20140409

REACTIONS (6)
  - Reaction to drug excipients [Recovered/Resolved]
  - Fall [Recovered/Resolved]
  - Dyspnoea [Recovered/Resolved]
  - Drug hypersensitivity [Recovered/Resolved]
  - Paralysis [Recovered/Resolved]
  - Face injury [Recovered/Resolved]

NARRATIVE: CASE EVENT DATE: 20140409
